FAERS Safety Report 7956026-4 (Version None)
Quarter: 2011Q4

REPORT INFORMATION
  Report Type: 
  Country: None (occurrence: None)
  Receive Date: 20111205
  Receipt Date: 20111130
  Transmission Date: 20120403
  Serious: No
  Sender: FDA-Public Use
  Company Number: US-PFIZER INC-2011280905

PATIENT
  Sex: Female
  Weight: 57.6 kg

DRUGS (1)
  1. ESTRING [Suspect]
     Dosage: 2 MG, UNK

REACTIONS (2)
  - ORAL DISCOMFORT [None]
  - STOMATITIS [None]
